FAERS Safety Report 8294012-8 (Version None)
Quarter: 2012Q2

REPORT INFORMATION
  Report Type: 
  Country: None (occurrence: None)
  Receive Date: 20120413
  Receipt Date: 20120413
  Transmission Date: 20120825
  Serious: No
  Sender: FDA-Public Use
  Company Number: None

PATIENT
  Age: 58 Year
  Sex: Female

DRUGS (1)
  1. CRESTOR [Suspect]
     Dates: start: 20101001, end: 20110102

REACTIONS (15)
  - SMOOTH MUSCLE ANTIBODY POSITIVE [None]
  - LIVER INJURY [None]
  - HERNIA PAIN [None]
  - FATIGUE [None]
  - DECREASED APPETITE [None]
  - CHOLELITHIASIS [None]
  - IMMUNE SYSTEM DISORDER [None]
  - HEPATITIS ACUTE [None]
  - BLOOD GLUCOSE INCREASED [None]
  - BLOOD IMMUNOGLOBULIN G INCREASED [None]
  - ABDOMINAL PAIN [None]
  - LIPIDS INCREASED [None]
  - ANTINUCLEAR ANTIBODY POSITIVE [None]
  - AUTOIMMUNE HEPATITIS [None]
  - ASTHENIA [None]
